FAERS Safety Report 10037537 (Version 1)
Quarter: 2014Q1

REPORT INFORMATION
  Report Type: Spontaneous
  Country: DE (occurrence: None)
  Receive Date: 20140324
  Receipt Date: 20140324
  Transmission Date: 20141002
  Serious: Yes (Other)
  Sender: FDA-Public Use
  Company Number: B0978535A

PATIENT
  Age: 46 Year
  Sex: Female

DRUGS (2)
  1. FLUTICASONE PROPIONATE [Suspect]
     Indication: CHRONIC OBSTRUCTIVE PULMONARY DISEASE
  2. RITONAVIR [Suspect]
     Indication: HIV INFECTION

REACTIONS (5)
  - Drug interaction [None]
  - Cushing^s syndrome [None]
  - Pneumonia pseudomonal [None]
  - Cytomegalovirus infection [None]
  - Immunodeficiency [None]
